FAERS Safety Report 13395130 (Version 1)
Quarter: 2017Q2

REPORT INFORMATION
  Report Type: Spontaneous
  Country: US (occurrence: US)
  Receive Date: 20170403
  Receipt Date: 20170403
  Transmission Date: 20170830
  Serious: Yes (Other)
  Sender: FDA-Public Use
  Company Number: US-TEVA-755257ACC

PATIENT
  Age: 32 Year
  Sex: Female
  Weight: 52.21 kg

DRUGS (1)
  1. PLAN B ONE-STEP [Suspect]
     Active Substance: LEVONORGESTREL
     Indication: POST COITAL CONTRACEPTION
     Dates: start: 2017, end: 2017

REACTIONS (3)
  - Menstruation delayed [Not Recovered/Not Resolved]
  - Breast swelling [Not Recovered/Not Resolved]
  - Pregnancy after post coital contraception [Unknown]

NARRATIVE: CASE EVENT DATE: 201703
